FAERS Safety Report 16045984 (Version 1)
Quarter: 2019Q1

REPORT INFORMATION
  Report Type: Spontaneous
  Country: ES (occurrence: ES)
  Receive Date: 20190307
  Receipt Date: 20190307
  Transmission Date: 20190418
  Serious: Yes (Hospitalization, Other)
  Sender: FDA-Public Use
  Company Number: ES-TEVA-2019-ES-1018368

PATIENT
  Age: 82 Year
  Sex: Female

DRUGS (9)
  1. TRAMADOL. [Interacting]
     Active Substance: TRAMADOL
     Dosage: 300-0-150
     Route: 048
     Dates: start: 201806
  2. AMIODARONA [Concomitant]
     Active Substance: AMIODARONE
     Dosage: 200MG CADA 24H
     Route: 048
  3. TRAZODONA [Interacting]
     Active Substance: TRAZODONE HYDROCHLORIDE
     Dosage: 100 MG C/24H
     Route: 048
     Dates: start: 201806
  4. SIRDALUD [Concomitant]
     Active Substance: TIZANIDINE
     Dosage: 2MG CADA 24H
  5. RAMIPRIL. [Concomitant]
     Active Substance: RAMIPRIL
     Dosage: 5MG CADA 24H
     Route: 048
  6. BISOPROLOL [Concomitant]
     Active Substance: BISOPROLOL
     Dosage: 5MG CADA 24H
     Route: 048
  7. LEVOSULPIRIDA [Concomitant]
     Route: 048
  8. VENLAFAXINA [Suspect]
     Active Substance: VENLAFAXINE HYDROCHLORIDE
     Dosage: 37,5 MG CADA 24 H
     Dates: start: 201806
  9. OMEPRAZOL [Concomitant]
     Active Substance: OMEPRAZOLE
     Dosage: 20MG CADA 24H
     Route: 048

REACTIONS (2)
  - Serotonin syndrome [Recovered/Resolved]
  - Drug interaction [Unknown]

NARRATIVE: CASE EVENT DATE: 20180928
